FAERS Safety Report 24255395 (Version 2)
Quarter: 2024Q3

REPORT INFORMATION
  Report Type: Spontaneous
  Country: US (occurrence: US)
  Receive Date: 20240827
  Receipt Date: 20240930
  Transmission Date: 20241016
  Serious: No
  Sender: SANOFI AVENTIS
  Company Number: US-SA-SAC20240819001096

PATIENT
  Age: 91 Year
  Sex: Female
  Weight: 43.5 kg

DRUGS (3)
  1. DUPIXENT [Suspect]
     Active Substance: DUPILUMAB
     Indication: Ill-defined disorder
     Dosage: 600 MG, 1X
     Route: 058
     Dates: start: 202407
  2. DUPIXENT [Suspect]
     Active Substance: DUPILUMAB
     Dosage: 300 MG QOW
     Dates: start: 2024
  3. CORTISONE [Concomitant]
     Active Substance: CORTISONE

REACTIONS (13)
  - Fatigue [Unknown]
  - Arthritis [Unknown]
  - Rhinorrhoea [Unknown]
  - Paraesthesia [Unknown]
  - Confusional state [Unknown]
  - Pain in extremity [Unknown]
  - Headache [Unknown]
  - Dizziness [Unknown]
  - Eyelids pruritus [Unknown]
  - Condition aggravated [Unknown]
  - Eye pruritus [Unknown]
  - Condition aggravated [Unknown]
  - Injection site pain [Unknown]

NARRATIVE: CASE EVENT DATE: 20240101
